FAERS Safety Report 8113398-8 (Version None)
Quarter: 2012Q1

REPORT INFORMATION
  Report Type: 
  Country: None (occurrence: None)
  Receive Date: 20120203
  Receipt Date: 20120130
  Transmission Date: 20120608
  Serious: Yes (Death, Hospitalization, Other)
  Sender: FDA-Public Use
  Company Number: PHHY2012MX001422

PATIENT
  Age: 77 Year
  Sex: Male

DRUGS (5)
  1. BISOPROLOL FUMARATE [Concomitant]
     Dosage: UNK UKN, UNK
  2. METFORMIN HCL [Concomitant]
     Dosage: UNK UKN, UNK
  3. LOSARTAN POTASSIUM [Concomitant]
     Dosage: UNK UKN, UNK
  4. VITAMIN B COMPLEX CAP [Concomitant]
     Dosage: UNK UKN, UNK
  5. DIOVAN HCT [Suspect]
     Indication: HYPERTENSION
     Dosage: 1 DF (160/25), DAILY
     Dates: start: 20090101, end: 20110709

REACTIONS (13)
  - PANCREATITIS [None]
  - VOMITING [None]
  - FATIGUE [None]
  - PANCREATIC INJURY [None]
  - HYPOTENSION [None]
  - MULTI-ORGAN FAILURE [None]
  - LIVER DISORDER [None]
  - GALLBLADDER OEDEMA [None]
  - HYPOGLYCAEMIA [None]
  - JAUNDICE [None]
  - NAUSEA [None]
  - MYALGIA [None]
  - RESPIRATORY ARREST [None]
